FAERS Safety Report 9254689 (Version 1)
Quarter: 2013Q2

REPORT INFORMATION
  Report Type: Spontaneous
  Country: IT (occurrence: None)
  Receive Date: 20130419
  Receipt Date: 20130419
  Transmission Date: 20140414
  Serious: Yes (Hospitalization)
  Sender: FDA-Public Use
  Company Number: FK201301236

PATIENT
  Age: 42 Year
  Sex: Female

DRUGS (6)
  1. OXALIPLATIN [Suspect]
     Indication: RECTAL CANCER
     Dosage: 235 MG, CYCLICAL INTRAVENOUS (NOT OTHER WISE SPECIFIED)
     Route: 042
     Dates: start: 20121127, end: 20130114
  2. XELODA (CAPECITABINE) [Suspect]
     Indication: RECTAL CANCER
     Dosage: 3500 MG, CYCLICAL INTRAVENOUS (NOT OTHER WISE SPECIFIED)
     Dates: start: 20121128, end: 20130118
  3. SOLDESAM (DEXAMETHASONE SODIUM SUCCINATE) [Concomitant]
  4. ZOFRAN (ONDANSETRON) [Concomitant]
  5. LEXOTAN (BROMAZEPAM) [Concomitant]
  6. ANTRA [Suspect]

REACTIONS (2)
  - Pulmonary embolism [None]
  - Deep vein thrombosis [None]
